FAERS Safety Report 10306895 (Version 1)
Quarter: 2014Q3

REPORT INFORMATION
  Report Type: Spontaneous
  Country: US (occurrence: US)
  Receive Date: 20140715
  Receipt Date: 20140715
  Transmission Date: 20150326
  Serious: Yes (Other)
  Sender: FDA-Public Use
  Company Number: US-AMGEN-USASP2014051469

PATIENT
  Age: 46 Year
  Sex: Female

DRUGS (1)
  1. ENBREL [Suspect]
     Active Substance: ETANERCEPT
     Indication: RHEUMATOID ARTHRITIS
     Dosage: 50 MG, QWK
     Route: 058
     Dates: start: 201403

REACTIONS (5)
  - Secretion discharge [Not Recovered/Not Resolved]
  - Furuncle [Not Recovered/Not Resolved]
  - Cyst [Not Recovered/Not Resolved]
  - Dizziness [Unknown]
  - Scar [Recovered/Resolved]

NARRATIVE: CASE EVENT DATE: 2014
